FAERS Safety Report 7960444-8 (Version None)
Quarter: 2011Q4

REPORT INFORMATION
  Report Type: 
  Country: None (occurrence: None)
  Receive Date: 20111206
  Receipt Date: 20111202
  Transmission Date: 20120403
  Serious: Yes (Death, Other)
  Sender: FDA-Public Use
  Company Number: JP-B.I. PHARMACEUTICALS,INC./RIDGEFIELD-2011-BP-26384NB

PATIENT
  Sex: Female
  Weight: 45 kg

DRUGS (4)
  1. LIVALO [Concomitant]
     Indication: HYPERLIPIDAEMIA
     Dosage: 1 MG
     Route: 048
     Dates: start: 20060410, end: 20111104
  2. PRADAXA [Suspect]
     Dosage: 220 MG
     Route: 048
     Dates: start: 20110910, end: 20111104
  3. LOSARTAN POTASSIUM [Concomitant]
     Indication: HYPERTENSION
     Dosage: 25 MG
     Route: 048
     Dates: start: 20060410, end: 20111104
  4. ADENOSINE [Concomitant]
     Indication: DIZZINESS
     Dosage: 2 MG
     Route: 048
     Dates: start: 20091211, end: 20111104

REACTIONS (5)
  - ROAD TRAFFIC ACCIDENT [None]
  - HAEMORRHAGE SUBCUTANEOUS [None]
  - BRAIN CONTUSION [None]
  - SUBDURAL HAEMATOMA [None]
  - CEREBRAL HAEMORRHAGE TRAUMATIC [None]
